FAERS Safety Report 25938920 (Version 1)
Quarter: 2025Q4

REPORT INFORMATION
  Report Type: Report from Study
  Country: EU (occurrence: EU)
  Receive Date: 20251019
  Receipt Date: 20251019
  Transmission Date: 20260117
  Serious: Yes (Hospitalization)
  Sender: ABBVIE
  Company Number: EU-ABBVIE-6508818

PATIENT
  Age: 77 Year
  Sex: Male

DRUGS (1)
  1. CARBIDOPA [Suspect]
     Active Substance: CARBIDOPA
     Indication: Parkinson^s disease
     Dosage: DAILY DOSE: 1,795.2MG ?CRL: 0.26ML/H, CRB: 0.3ML/H, CRH: 0.32ML/H, ED: 0.3ML, LD: 0.6ML
     Route: 058
     Dates: start: 20241213

REACTIONS (2)
  - Rib fracture [Not Recovered/Not Resolved]
  - Fall [Unknown]

NARRATIVE: CASE EVENT DATE: 20251009
